FAERS Safety Report 11291509 (Version 1)
Quarter: 2015Q3

REPORT INFORMATION
  Report Type: Spontaneous
  Country: US (occurrence: US)
  Receive Date: 20150722
  Receipt Date: 20150722
  Transmission Date: 20151125
  Serious: No
  Sender: FDA-Public Use
  Company Number: US-TAKEDA-2015MPI004748

PATIENT

DRUGS (3)
  1. PANOBINOSTAT [Suspect]
     Active Substance: PANOBINOSTAT
     Indication: PRODUCT USED FOR UNKNOWN INDICATION
     Dosage: 20 MG, UNK
     Route: 065
  2. VELCADE [Suspect]
     Active Substance: BORTEZOMIB
     Indication: PRODUCT USED FOR UNKNOWN INDICATION
     Dosage: UNK
     Route: 065
  3. PANOBINOSTAT [Suspect]
     Active Substance: PANOBINOSTAT
     Dosage: 15 MG, UNK
     Route: 065

REACTIONS (1)
  - Platelet count decreased [Unknown]
